FAERS Safety Report 14817329 (Version 1)
Quarter: 2018Q2

REPORT INFORMATION
  Report Type: Spontaneous
  Country: US (occurrence: US)
  Receive Date: 20180426
  Receipt Date: 20180426
  Transmission Date: 20180711
  Serious: No
  Sender: FDA-Public Use
  Company Number: US-TEVA-2018-US-885034

PATIENT
  Age: 57 Year
  Sex: Female

DRUGS (1)
  1. NEFAZODONE [Suspect]
     Active Substance: NEFAZODONE
     Indication: DEPRESSION
     Dates: start: 201803, end: 20180328

REACTIONS (5)
  - Pain [Unknown]
  - Pyrexia [Unknown]
  - Asthenia [Unknown]
  - Influenza [Unknown]
  - Panic attack [Unknown]

NARRATIVE: CASE EVENT DATE: 201804
